FAERS Safety Report 8716215 (Version 2)
Quarter: 2013Q4

REPORT INFORMATION
  Report Type: Spontaneous
  Country: ZA (occurrence: ZA)
  Receive Date: 20120809
  Receipt Date: 20131031
  Transmission Date: 20140711
  Serious: Yes (Life-Threatening)
  Sender: FDA-Public Use
  Company Number: ZA-009507513-2012SP033677

PATIENT
  Sex: Male

DRUGS (3)
  1. ESMERON [Suspect]
     Indication: MUSCLE RELAXANT THERAPY
     Dosage: 65MG EQUAL TO 6.5 ML
     Dates: start: 20120503
  2. SUFENTA [Concomitant]
     Dosage: 0.01 MG EQUAL TO 2 ML
     Dates: start: 20120503
  3. PROPOFOL FRESENIUS KABI [Concomitant]
     Dosage: PROPOFOL 1% FRESENIUS (15 ML)
     Dates: start: 20120503

REACTIONS (2)
  - Urticaria [Unknown]
  - Bronchospasm [Recovered/Resolved]
